FAERS Safety Report 4541311-9 (Version None)
Quarter: 2004Q4

REPORT INFORMATION
  Report Type: 
  Country: None (occurrence: None)
  Receive Date: 20041222
  Receipt Date: 20041215
  Transmission Date: 20050328
  Serious: Yes (Death, Life-Threatening)
  Sender: FDA-Public Use
  Company Number: 2004EU002191

PATIENT
  Age: 57 Year
  Sex: Male

DRUGS (5)
  1. PROGRAF [Suspect]
     Indication: BONE MARROW TRANSPLANT
     Dosage: 0.50 DF, BID, ORAL
     Route: 048
     Dates: start: 20030201
  2. HYDROCORTISONE [Suspect]
     Dosage: 30.00 MG, UID/QD, ORAL
     Route: 048
  3. CELLCEPT [Suspect]
     Indication: BONE MARROW TRANSPLANT
     Dosage: 250.00 MG, BID, ORAL
     Route: 048
     Dates: start: 20030201
  4. LAROXYL (AMITRIPTYLINE HYDROCHLORIDE) SOLUTION [Concomitant]
  5. CLONAZEPAM [Concomitant]

REACTIONS (5)
  - BRONCHOPULMONARY ASPERGILLOSIS [None]
  - GRAFT VERSUS HOST DISEASE [None]
  - RESPIRATORY DISTRESS [None]
  - STENOTROPHOMONAS INFECTION [None]
  - SUPERINFECTION [None]
